FAERS Safety Report 7272447-X (Version None)
Quarter: 2011Q1

REPORT INFORMATION
  Report Type: 
  Country: None (occurrence: None)
  Receive Date: 20110203
  Receipt Date: 20110121
  Transmission Date: 20110831
  Serious: Yes (Death, Other)
  Sender: FDA-Public Use
  Company Number: US-SANOFI-AVENTIS-A03200904915

PATIENT
  Age: 81 Year
  Sex: Female
  Weight: 89.9 kg

DRUGS (11)
  1. METOPROLOL [Concomitant]
     Route: 065
  2. PRAVASTATIN [Concomitant]
     Dates: end: 20091010
  3. APAP TAB [Concomitant]
     Indication: PAIN
     Dates: start: 20091006, end: 20091011
  4. CITALOPRAM HYDROBROMIDE [Concomitant]
     Indication: DEPRESSION
     Dates: end: 20091011
  5. MULTAQ [Suspect]
     Dosage: UNIT DOSE: 400 MG
     Route: 048
     Dates: start: 20091008, end: 20091012
  6. ESOMEPRAZOLE [Concomitant]
     Dates: end: 20091012
  7. LASIX [Concomitant]
     Route: 065
     Dates: end: 20091013
  8. COUMADIN [Suspect]
     Indication: ATRIAL FIBRILLATION
     Route: 065
  9. APAP TAB [Concomitant]
     Dates: start: 20091006, end: 20091011
  10. LEVOTHYROXINE [Concomitant]
     Indication: HYPOTHYROIDISM
     Dates: end: 20091012
  11. LIOTHYRONINE SODIUM [Concomitant]
     Indication: HYPOTHYROIDISM
     Dates: end: 20091012

REACTIONS (9)
  - SHOCK [None]
  - MULTI-ORGAN FAILURE [None]
  - PULSELESS ELECTRICAL ACTIVITY [None]
  - CARDIOMEGALY [None]
  - BRONCHOPNEUMONIA [None]
  - ATRIAL FIBRILLATION [None]
  - LIVER FUNCTION TEST ABNORMAL [None]
  - INTERNATIONAL NORMALISED RATIO INCREASED [None]
  - ATELECTASIS [None]
